FAERS Safety Report 8153965-9 (Version None)
Quarter: 2012Q1

REPORT INFORMATION
  Report Type: 
  Country: None (occurrence: None)
  Receive Date: 20120221
  Receipt Date: 20120221
  Transmission Date: 20120608
  Serious: No
  Sender: FDA-Public Use
  Company Number: None

PATIENT
  Age: 22 Year
  Sex: Female
  Weight: 50.802 kg

DRUGS (1)
  1. CIPROFLOXACIN HCL [Suspect]
     Indication: URINARY TRACT INFECTION
     Dosage: 500MG
     Route: 048
     Dates: start: 20120216, end: 20120217

REACTIONS (7)
  - HYPERAESTHESIA [None]
  - DRUG HYPERSENSITIVITY [None]
  - PAIN [None]
  - MIGRAINE [None]
  - DIZZINESS [None]
  - PAIN IN EXTREMITY [None]
  - VOMITING [None]
